FAERS Safety Report 5401205-3 (Version None)
Quarter: 2007Q3

REPORT INFORMATION
  Report Type: 
  Country: None (occurrence: None)
  Receive Date: 20070726
  Receipt Date: 20070715
  Transmission Date: 20080115
  Serious: Yes (Other)
  Sender: FDA-Public Use
  Company Number: 07H-163-0312891-00

PATIENT
  Age: 23 Month
  Sex: Female
  Weight: 14.3 kg

DRUGS (9)
  1. MORPHINE SULFATE [Suspect]
     Indication: INDUCTION OF ANAESTHESIA
     Dosage: 0.28 MG/H INFUSION
  2. VECURONIUM BROMIDE [Suspect]
     Indication: INDUCTION OF ANAESTHESIA
     Dosage: 2 MG, INTRAVENOUS
     Route: 042
  3. PENTOTHAL [Suspect]
     Indication: INDUCTION OF ANAESTHESIA
     Dosage: 50 MG, INTRAVENOUS
     Route: 042
  4. MIDAZOLAM HYDROCHLORIDE [Suspect]
     Indication: INDUCTION OF ANAESTHESIA
     Dosage: 0.5 MG/H INFUSION
  5. QUELICIN [Suspect]
     Indication: INDUCTION OF ANAESTHESIA
     Dosage: 30 MG, INTRAVENOUS
     Route: 042
  6. ALIMEMAZINE TARTRATE (ALIMEMAZINE TARTRATE) [Concomitant]
  7. TRICLOFOS SODIUM (TRICLOFOS SODIUM) [Concomitant]
  8. SODIUM FEREDETATE (SODIUM FEREDETATE) [Concomitant]
  9. RECOMBINANT HUMAN ACID ALPHA-GLUCOSIDASE (ACID ALPHA GLUCOSIDASE) [Concomitant]

REACTIONS (1)
  - BRADYCARDIA [None]
